FAERS Safety Report 9577191 (Version 1)
Quarter: 2013Q4

REPORT INFORMATION
  Report Type: Spontaneous
  Country: US (occurrence: US)
  Receive Date: 20131001
  Receipt Date: 20131001
  Transmission Date: 20140711
  Serious: Yes (Other)
  Sender: FDA-Public Use
  Company Number: CHPA2013US014833

PATIENT
  Age: 77 Year
  Sex: Female

DRUGS (2)
  1. KERI ORIGINAL [Suspect]
     Indication: OFF LABEL USE
     Dosage: UNK DF, QD
     Route: 061
  2. KERI ORIGINAL [Suspect]
     Indication: DRY SKIN

REACTIONS (8)
  - Breast cancer stage III [Recovering/Resolving]
  - Diabetes mellitus [Unknown]
  - Clostridium difficile infection [Recovering/Resolving]
  - Alopecia [Not Recovered/Not Resolved]
  - Asthenia [Not Recovered/Not Resolved]
  - Pruritus [Recovered/Resolved]
  - Condition aggravated [Recovered/Resolved]
  - Therapeutic response unexpected [Unknown]
